FAERS Safety Report 6472360-1 (Version None)
Quarter: 2009Q4

REPORT INFORMATION
  Report Type: 
  Country: None (occurrence: None)
  Receive Date: 20091130
  Receipt Date: 20091110
  Transmission Date: 20100525
  Serious: Yes (Hospitalization)
  Sender: FDA-Public Use
  Company Number: AUR-APL-2009-01358

PATIENT
  Age: 57 Year
  Sex: Female

DRUGS (12)
  1. MIRTAZAPINE [Suspect]
     Dosage: 30MG, DAILY, ORAL
     Route: 048
  2. ERGENYL CHRONO (VALPROATE SODIUM, VALPROIC ACID) [Suspect]
     Dosage: 2500MG, DAILY, ORAL
     Route: 048
     Dates: end: 20090429
  3. ERGENYL CHRONO(VALPROATE SODIUM, VALPROIC ACID) [Suspect]
     Dosage: 2000MG - DAILY - ORAL
     Route: 048
     Dates: start: 20090430, end: 20090506
  4. LORAZEPAM [Suspect]
     Dosage: 1.5MG - DAILY - ORAL
     Route: 048
     Dates: start: 20090429, end: 20090505
  5. CYMBALTA [Suspect]
     Dosage: 120MG - DAILY - ORAL
     Route: 048
     Dates: start: 20090428
  6. LAMOTRIGINE [Suspect]
     Dosage: 150MG - DAILY - ORAL
     Route: 048
     Dates: end: 20090429
  7. LAMOTRIGINE [Suspect]
     Dosage: 200MG - DAILY - ORAL
     Route: 048
     Dates: start: 20090430
  8. ABILIFY [Suspect]
     Dosage: 5MG - DAILY - ORAL
     Route: 048
     Dates: start: 20090430, end: 20090503
  9. ABILIFY [Suspect]
     Dosage: 10MG - DAILY - ORAL
     Route: 048
     Dates: start: 20090504
  10. MELPERONE [Suspect]
     Dosage: 50MG - DAILY - ORAL
     Route: 048
     Dates: start: 20090430, end: 20090505
  11. MELEPRONE [Suspect]
     Dosage: 25MG - DAILY - ORAL
     Route: 048
     Dates: start: 20090506, end: 20090507
  12. IODINE [Concomitant]

REACTIONS (4)
  - ATAXIA [None]
  - DEMENTIA [None]
  - ENCEPHALOPATHY [None]
  - EXTENSOR PLANTAR RESPONSE [None]
